FAERS Safety Report 8946606 (Version 2)
Quarter: 2013Q1

REPORT INFORMATION
  Report Type: Spontaneous
  Country: US (occurrence: US)
  Receive Date: 20121204
  Receipt Date: 20130212
  Transmission Date: 20140127
  Serious: Yes (Hospitalization)
  Sender: FDA-Public Use
  Company Number: US-B.I. PHARMACEUTICALS,INC./RIDGEFIELD-2012-BI-01680BP

PATIENT
  Age: 64 Year
  Sex: Female
  Weight: 127 kg

DRUGS (3)
  1. SPIRIVA [Suspect]
     Indication: PULMONARY ARTERIAL HYPERTENSION
     Dosage: 18 MCG
     Route: 055
     Dates: start: 2009
  2. REMODULIN [Concomitant]
     Indication: PULMONARY ARTERIAL HYPERTENSION
     Route: 042
     Dates: start: 200908
  3. MEDICATION NOT FURTHER SPECIFIED [Concomitant]

REACTIONS (1)
  - Pulmonary oedema [Unknown]
